FAERS Safety Report 8556784-4 (Version None)
Quarter: 2012Q3

REPORT INFORMATION
  Report Type: 
  Country: None (occurrence: None)
  Receive Date: 20120801
  Receipt Date: 20120724
  Transmission Date: 20120928
  Serious: Yes (Other)
  Sender: FDA-Public Use
  Company Number: US-NOVOPROD-356773

PATIENT
  Age: 14 Year
  Sex: Male
  Weight: 39.456 kg

DRUGS (1)
  1. NORDITROPIN FLEXPRO [Suspect]
     Indication: NOONAN SYNDROME
     Dosage: 0.6 MG, QD
     Route: 058
     Dates: start: 20111228, end: 20120625

REACTIONS (2)
  - BRAIN NEOPLASM [None]
  - CONDITION AGGRAVATED [None]
